FAERS Safety Report 4555702-3 (Version None)
Quarter: 2005Q1

REPORT INFORMATION
  Report Type: 
  Country: None (occurrence: None)
  Receive Date: 20050119
  Receipt Date: 20050107
  Transmission Date: 20050727
  Serious: Yes (Other)
  Sender: FDA-Public Use
  Company Number: FR-JNJFOC-20050102413

PATIENT
  Age: 35 Year
  Sex: Female

DRUGS (3)
  1. TOPALGIC [Suspect]
     Route: 049
  2. TOPALGIC [Suspect]
     Route: 049
  3. NAPROSYN [Concomitant]
     Route: 065

REACTIONS (2)
  - ABORTION SPONTANEOUS [None]
  - DRUG EXPOSURE DURING PREGNANCY [None]
